FAERS Safety Report 14022132 (Version 1)
Quarter: 2017Q3

REPORT INFORMATION
  Report Type: Spontaneous
  Country: NL (occurrence: NL)
  Receive Date: 20170928
  Receipt Date: 20170928
  Transmission Date: 20171128
  Serious: Yes (Other)
  Sender: FDA-Public Use
  Company Number: NL-SA-2017SA178532

PATIENT
  Age: 63 Year
  Sex: Female
  Weight: 75 kg

DRUGS (1)
  1. LEVOCETIRIZINE [Suspect]
     Active Substance: LEVOCETIRIZINE
     Indication: HYPERSENSITIVITY
     Route: 065
     Dates: start: 20170831

REACTIONS (4)
  - Pneumonia [Unknown]
  - Nervousness [Not Recovered/Not Resolved]
  - Palpitations [Not Recovered/Not Resolved]
  - Insomnia [Not Recovered/Not Resolved]

NARRATIVE: CASE EVENT DATE: 2017
